FAERS Safety Report 8013153-3 (Version None)
Quarter: 2011Q4

REPORT INFORMATION
  Report Type: 
  Country: None (occurrence: None)
  Receive Date: 20111229
  Receipt Date: 20111222
  Transmission Date: 20120403
  Serious: No
  Sender: FDA-Public Use
  Company Number: US-PFIZER INC-2011312548

PATIENT

DRUGS (4)
  1. ZOLOFT [Suspect]
     Dosage: 100 MG
     Dates: start: 20100801
  2. PRISTIQ [Suspect]
     Dosage: 100 MG
  3. PRISTIQ [Suspect]
     Dosage: 150 MG
  4. ZOLOFT [Suspect]
     Dosage: 200 MG

REACTIONS (1)
  - MOOD SWINGS [None]
